FAERS Safety Report 6542915-4 (Version None)
Quarter: 2010Q1

REPORT INFORMATION
  Report Type: 
  Country: None (occurrence: None)
  Receive Date: 20100114
  Receipt Date: 20100108
  Transmission Date: 20100710
  Serious: Yes (Hospitalization)
  Sender: FDA-Public Use
  Company Number: 2009SP041988

PATIENT
  Age: 70 Year
  Sex: Female
  Weight: 59 kg

DRUGS (11)
  1. TEMOZOLOMIDE [Suspect]
     Indication: METASTATIC MALIGNANT MELANOMA
     Dates: start: 20090911, end: 20091117
  2. ABT - 888 (INVESTIGATIONAL DRUG) [Suspect]
     Indication: METASTATIC MALIGNANT MELANOMA
     Dosage: ; BID;PO
     Route: 048
     Dates: start: 20090911, end: 20091117
  3. RAMIPRIL [Concomitant]
  4. BENDROFLUAZINE [Concomitant]
  5. PARACETAMOL [Concomitant]
  6. MAGNESIUM HYDROXIDE TAB [Concomitant]
  7. NULYTELY [Concomitant]
  8. MAG-LAX [Concomitant]
  9. METOCLOPRAMIDE [Concomitant]
  10. ONDANSETRON [Concomitant]
  11. VACCINIUM MACROCARPON [Concomitant]

REACTIONS (8)
  - ABDOMINAL PAIN LOWER [None]
  - ANAEMIA [None]
  - CONSTIPATION [None]
  - HYPOKALAEMIA [None]
  - HYPONATRAEMIA [None]
  - NAUSEA [None]
  - SEPSIS [None]
  - VOMITING [None]
